FAERS Safety Report 15229779 (Version 3)
Quarter: 2018Q4

REPORT INFORMATION
  Report Type: Spontaneous
  Country: US (occurrence: US)
  Receive Date: 20180802
  Receipt Date: 20181211
  Transmission Date: 20190204
  Serious: No
  Sender: FDA-Public Use
  Company Number: US-BRISTOL-MYERS SQUIBB COMPANY-BMS-2018-070024

PATIENT
  Sex: Male
  Weight: 99.7 kg

DRUGS (1)
  1. OPDIVO [Suspect]
     Active Substance: NIVOLUMAB
     Indication: RENAL NEOPLASM
     Dosage: UNK UNK, Q2WK
     Route: 042
     Dates: start: 20180716

REACTIONS (4)
  - Fatigue [Unknown]
  - Body temperature increased [Unknown]
  - Blood urine present [Unknown]
  - Urinary tract infection [Unknown]
